FAERS Safety Report 21980813 (Version 1)
Quarter: 2023Q1

REPORT INFORMATION
  Report Type: Report from Study
  Country: IN (occurrence: IN)
  Receive Date: 20230211
  Receipt Date: 20230211
  Transmission Date: 20230417
  Serious: Yes (Other)
  Sender: FDA-Public Use
  Company Number: IN-002147023-NVSC2023IN027996

PATIENT
  Age: 75 Year
  Sex: Male

DRUGS (2)
  1. ELTROMBOPAG OLAMINE [Suspect]
     Active Substance: ELTROMBOPAG OLAMINE
     Indication: Aplastic anaemia
     Dosage: 100 MG, QD
     Route: 048
     Dates: start: 20171006
  2. ELTROMBOPAG OLAMINE [Suspect]
     Active Substance: ELTROMBOPAG OLAMINE
     Dosage: 25 MG, QD
     Route: 048
     Dates: start: 20221008

REACTIONS (4)
  - Thrombocytopenia [Not Recovered/Not Resolved]
  - Hypertension [Not Recovered/Not Resolved]
  - Product use issue [Not Recovered/Not Resolved]
  - Asthenia [Not Recovered/Not Resolved]

NARRATIVE: CASE EVENT DATE: 20221008
